FAERS Safety Report 8838723 (Version 1)
Quarter: 2012Q4

REPORT INFORMATION
  Report Type: 
  Country: US (occurrence: US)
  Receive Date: 20121012
  Receipt Date: 20121012
  Transmission Date: 20130627
  Serious: Yes (Life-Threatening, Other)
  Sender: FDA-Public Use
  Company Number: US-ASTRAZENECA-2012SE77204

PATIENT
  Age: 44 Year
  Sex: Female
  Weight: 72.6 kg

DRUGS (7)
  1. SEROQUEL [Suspect]
     Indication: BIPOLAR DISORDER
     Route: 048
     Dates: start: 200404
  2. SEROQUEL [Suspect]
     Indication: BIPOLAR DISORDER
     Route: 048
     Dates: start: 200404
  3. DESVENLAFAXINE [Concomitant]
     Indication: DEPRESSION
     Route: 048
  4. MIRTAZAPINE [Concomitant]
     Indication: AFFECTIVE DISORDER
     Route: 048
  5. MIRTAZAPINE [Concomitant]
     Indication: DEPRESSION
     Route: 048
  6. HYDROXYZINE [Concomitant]
     Indication: ANXIETY
     Route: 048
  7. HYDROXYZINE [Concomitant]
     Indication: ANXIETY
     Route: 048

REACTIONS (3)
  - Suicide attempt [Unknown]
  - Suicidal ideation [Unknown]
  - Drug dose omission [Unknown]
